FAERS Safety Report 7215919-6 (Version None)
Quarter: 2011Q1

REPORT INFORMATION
  Report Type: 
  Country: None (occurrence: None)
  Receive Date: 20110104
  Receipt Date: 20110104
  Transmission Date: 20110831
  Serious: No
  Sender: FDA-Public Use
  Company Number: None

PATIENT
  Age: 69 Year
  Weight: 74.8435 kg

DRUGS (2)
  1. TAMSULOSIN HCL [Suspect]
     Indication: PROSTATOMEGALY
     Dosage: .4MG 1 DAILY PO
     Route: 048
     Dates: start: 20100601, end: 20101231
  2. TAMSULOSIN HCL [Suspect]
     Indication: POLLAKIURIA
     Dosage: .4MG 1 DAILY PO
     Route: 048
     Dates: start: 20100601, end: 20101231

REACTIONS (2)
  - THERAPEUTIC RESPONSE UNEXPECTED WITH DRUG SUBSTITUTION [None]
  - PRODUCT SUBSTITUTION ISSUE [None]
